FAERS Safety Report 18299405 (Version 1)
Quarter: 2020Q3

REPORT INFORMATION
  Report Type: Spontaneous
  Country: US (occurrence: US)
  Receive Date: 20200922
  Receipt Date: 20200922
  Transmission Date: 20201103
  Serious: No
  Sender: FDA-Public Use
  Company Number: None

PATIENT
  Age: 50 Year
  Sex: Male
  Weight: 192.2 kg

DRUGS (12)
  1. CEFTRIAXONE 1 GM IV DAILY [Concomitant]
     Dates: start: 20200920, end: 20200922
  2. LISINOPRIL 20 MG PO DAILY [Concomitant]
     Dates: start: 20200921, end: 20200921
  3. ASPIRIN. [Concomitant]
     Active Substance: ASPIRIN
     Dates: start: 20200921, end: 20200922
  4. ATORVASTATIN 40 MG PO QHS [Concomitant]
     Dates: start: 20200921, end: 20200921
  5. FUROSEMIDE 40 MG IV BID [Concomitant]
     Dates: start: 20200920, end: 20200922
  6. HYDROCHLOROTHIAZIDE 12.5 MG PO DAILY [Concomitant]
     Dates: start: 20200921, end: 20200922
  7. METOPROLOL CR 25 MG PO DAILY [Concomitant]
     Dates: start: 20200921, end: 20200922
  8. FENOFIBRATE 160 MG PO DAILY [Concomitant]
     Dates: start: 20200921, end: 20200922
  9. REMDESIVIR. [Suspect]
     Active Substance: REMDESIVIR
     Indication: COVID-19 PNEUMONIA
     Dosage: ?          OTHER FREQUENCY:ONE TIME;?
     Route: 042
     Dates: start: 20200921, end: 20200922
  10. AZITHROMYCIN 500 MG IV Q24H [Concomitant]
     Dates: start: 20200920, end: 20200922
  11. ENOXAPARIN 180 MG SQ Q12H [Concomitant]
     Dates: start: 20200921, end: 20200922
  12. METHYLPREDNISOLONE 20 MG IV Q12H [Concomitant]
     Dates: start: 20200921, end: 20200922

REACTIONS (2)
  - Cardiac failure [None]
  - Acute kidney injury [None]

NARRATIVE: CASE EVENT DATE: 20200922
